FAERS Safety Report 16719751 (Version 2)
Quarter: 2019Q4

REPORT INFORMATION
  Report Type: Spontaneous
  Country: US (occurrence: US)
  Receive Date: 20190820
  Receipt Date: 20191003
  Transmission Date: 20200122
  Serious: No
  Sender: FDA-Public Use
  Company Number: US-PFIZER INC-2019349168

PATIENT
  Age: 71 Year
  Sex: Female
  Weight: 72 kg

DRUGS (11)
  1. LETROZOLE. [Concomitant]
     Active Substance: LETROZOLE
     Dosage: 2.5 MG, DAILY (BY MOUTH,GOES WITH IBRANCE)
     Route: 048
     Dates: start: 201507
  2. OMEPRAZOLE. [Concomitant]
     Active Substance: OMEPRAZOLE
     Indication: GASTROOESOPHAGEAL REFLUX DISEASE
     Dosage: 20 MG, 1X/DAY
     Dates: start: 2014
  3. ESCITALOPRAM [Concomitant]
     Active Substance: ESCITALOPRAM OXALATE
     Indication: ANXIETY
     Dosage: 10 MG, 1X/DAY (TAKING BEFORE SHE BEGAN IBRANCE)
     Dates: start: 2000
  4. AZELASTINE HCL [Concomitant]
     Active Substance: AZELASTINE HYDROCHLORIDE
     Indication: SINUS DISORDER
     Dosage: UNK, 2X/DAY (TWO SQUIRTS IN EACH NOSTRIL TWICE A DAY,BEGAN BEFORE TAKING IBRANCE)
     Route: 045
     Dates: start: 2014
  5. CALCIUM+D [Concomitant]
     Active Substance: CALCIUM\VITAMIN D
     Indication: BONE DISORDER
     Dosage: 600 MG, 2X/DAY (WITH VITAMIN D.)
     Dates: start: 2000
  6. OMEPRAZOLE. [Concomitant]
     Active Substance: OMEPRAZOLE
     Indication: DYSPEPSIA
  7. FLOVENT HFA [Concomitant]
     Active Substance: FLUTICASONE PROPIONATE
     Indication: LUNG DISORDER
     Dosage: UNK, 2X/DAY (44 MCG ONE PUFF INHALED TWICE DAILY,BEGAN BEFORE IBRANCE)
     Route: 055
     Dates: start: 2014
  8. FLOVENT HFA [Concomitant]
     Active Substance: FLUTICASONE PROPIONATE
     Indication: DYSPNOEA
  9. IBRANCE [Suspect]
     Active Substance: PALBOCICLIB
     Indication: BREAST CANCER METASTATIC
     Dosage: 125 MG, CYCLIC (21 DAYS AND THEN 7 DAYS OFF, 1 EVERY DAY FOR 21 DAYS OFF 41 WEEK)
     Route: 048
     Dates: start: 201507
  10. IPRATROPIUM BROMIDE. [Concomitant]
     Active Substance: IPRATROPIUM BROMIDE
     Indication: SINUS DISORDER
     Dosage: UNK, 2X/DAY (42 MCG TWO SQUIRTS IN EACH NOSTRIL TWICE A DAY,BEFORE BEGINNING IBRANCE)
     Route: 045
     Dates: start: 2014
  11. VITAMIN D [COLECALCIFEROL] [Concomitant]
     Active Substance: CHOLECALCIFEROL
     Indication: SUPPLEMENTATION THERAPY
     Dosage: UNK, 1X/DAY
     Route: 048

REACTIONS (4)
  - Nail disorder [Not Recovered/Not Resolved]
  - Dry skin [Not Recovered/Not Resolved]
  - Nail growth abnormal [Not Recovered/Not Resolved]
  - Onycholysis [Not Recovered/Not Resolved]

NARRATIVE: CASE EVENT DATE: 2015
